FAERS Safety Report 7383354-6 (Version None)
Quarter: 2011Q1

REPORT INFORMATION
  Report Type: 
  Country: None (occurrence: None)
  Receive Date: 20110330
  Receipt Date: 20110318
  Transmission Date: 20110831
  Serious: Yes (Hospitalization)
  Sender: FDA-Public Use
  Company Number: FR-US-EMD SERONO, INC.-7048375

PATIENT
  Sex: Female
  Weight: 76 kg

DRUGS (7)
  1. SOLU-MEDROL [Concomitant]
     Route: 042
     Dates: start: 20101220, end: 20101220
  2. SOLU-MEDROL [Concomitant]
     Route: 042
     Dates: start: 20100120, end: 20100120
  3. REBIF [Suspect]
     Route: 058
     Dates: start: 20101006, end: 20101018
  4. REBIF [Suspect]
     Route: 058
     Dates: start: 20101022, end: 20101220
  5. REBIF [Suspect]
     Route: 058
     Dates: start: 20101020, end: 20101020
  6. SOLU-MEDROL [Concomitant]
     Indication: MULTIPLE SCLEROSIS
     Route: 042
     Dates: start: 20101020, end: 20101020
  7. REBIF [Suspect]
     Indication: RELAPSING-REMITTING MULTIPLE SCLEROSIS
     Route: 058
     Dates: start: 20100920, end: 20101004

REACTIONS (1)
  - CYTOLYTIC HEPATITIS [None]
